FAERS Safety Report 6625551-0 (Version None)
Quarter: 2010Q1

REPORT INFORMATION
  Report Type: 
  Country: None (occurrence: None)
  Receive Date: 20100223
  Receipt Date: 20091109
  Transmission Date: 20100710
  Serious: No
  Sender: FDA-Public Use
  Company Number: 8054339

PATIENT
  Sex: Male

DRUGS (2)
  1. CERTOLIZUMAB PEGOL (UCB, INC) [Suspect]
     Indication: CROHN'S DISEASE
     Dosage: (SUBCUTANEOUS)
     Route: 058
  2. PREDNISONE [Concomitant]

REACTIONS (2)
  - MIGRAINE [None]
  - SKIN DISCOLOURATION [None]
